FAERS Safety Report 5004931-3 (Version None)
Quarter: 2006Q1

REPORT INFORMATION
  Report Type: 
  Country: None (occurrence: None)
  Receive Date: 20060321
  Receipt Date: 20060103
  Transmission Date: 20060701
  Serious: No
  Sender: FDA-Public Use
  Company Number: YPA20050627

PATIENT
  Age: 87 Year
  Sex: Male

DRUGS (11)
  1. VESICARE [Suspect]
     Indication: INCONTINENCE
     Dosage: SEE IMAGE
     Route: 048
     Dates: start: 20051119, end: 20051101
  2. VESICARE [Suspect]
     Indication: INCONTINENCE
     Dosage: SEE IMAGE
     Route: 048
     Dates: start: 20051101
  3. MICARDIS HCT (TELMISARTAN) [Concomitant]
  4. ATENOLOL [Concomitant]
  5. SULAR [Concomitant]
  6. LIPITOR [Concomitant]
  7. PROSCAR [Concomitant]
  8. ADVANDIA (ROSIGLITAZONE MALEATE) [Concomitant]
  9. AGGRENOX [Concomitant]
  10. TRICOR [Concomitant]
  11. TYLENOL PM (DIPHENHYDRAMINE) [Concomitant]

REACTIONS (3)
  - CONSTIPATION [None]
  - DRY MOUTH [None]
  - URINARY RETENTION [None]
